FAERS Safety Report 7077443-3 (Version None)
Quarter: 2010Q4

REPORT INFORMATION
  Report Type: 
  Country: None (occurrence: None)
  Receive Date: 20101025
  Receipt Date: 20101008
  Transmission Date: 20110411
  Serious: Yes (Hospitalization)
  Sender: FDA-Public Use
  Company Number: 020154

PATIENT
  Sex: Female

DRUGS (1)
  1. CIMZIA [Suspect]
     Indication: CROHN'S DISEASE
     Dosage: (SUBCUTANEOUS)
     Route: 058
     Dates: start: 20100317

REACTIONS (4)
  - ABDOMINAL PAIN [None]
  - BLOOD ELECTROLYTES ABNORMAL [None]
  - CONDITION AGGRAVATED [None]
  - CROHN'S DISEASE [None]
